FAERS Safety Report 24211445 (Version 7)
Quarter: 2025Q2

REPORT INFORMATION
  Report Type: Spontaneous
  Country: US (occurrence: US)
  Receive Date: 20240814
  Receipt Date: 20250513
  Transmission Date: 20250716
  Serious: No
  Sender: SANOFI AVENTIS
  Company Number: US-SA-SAC20240808001187

PATIENT
  Age: 46 Year
  Sex: Male

DRUGS (5)
  1. DUPIXENT [Suspect]
     Active Substance: DUPILUMAB
     Indication: Dermatitis atopic
     Dosage: 300 MG, QOW
     Route: 058
     Dates: start: 202405
  2. DUPIXENT [Suspect]
     Active Substance: DUPILUMAB
     Indication: Dermatitis allergic
  3. DUPIXENT [Suspect]
     Active Substance: DUPILUMAB
     Indication: Eczema
  4. DUPIXENT [Suspect]
     Active Substance: DUPILUMAB
     Indication: Psoriasis
  5. METHOTREXATE [Concomitant]
     Active Substance: METHOTREXATE

REACTIONS (17)
  - Brain fog [Unknown]
  - Stress [Unknown]
  - Fatigue [Unknown]
  - COVID-19 [Unknown]
  - Eye symptom [Recovered/Resolved]
  - Onychoclasis [Unknown]
  - Alopecia [Unknown]
  - Condition aggravated [Unknown]
  - Dermatitis psoriasiform [Recovering/Resolving]
  - Lung disorder [Unknown]
  - Cough [Unknown]
  - Pruritus [Unknown]
  - Dermatitis atopic [Recovering/Resolving]
  - Rash [Unknown]
  - Drug ineffective [Unknown]
  - Product storage error [Unknown]
  - Product use in unapproved indication [Unknown]

NARRATIVE: CASE EVENT DATE: 20240101
